FAERS Safety Report 7040307-5 (Version None)
Quarter: 2010Q4

REPORT INFORMATION
  Report Type: 
  Country: None (occurrence: None)
  Receive Date: 20101012
  Receipt Date: 20100930
  Transmission Date: 20110411
  Serious: Yes (Other)
  Sender: FDA-Public Use
  Company Number: US-BAUSCH-2010BL005537

PATIENT
  Age: 62 Year
  Sex: Female

DRUGS (6)
  1. BESIVANCE [Suspect]
     Indication: PREOPERATIVE CARE
     Route: 047
     Dates: start: 20100926, end: 20100929
  2. BESIVANCE [Suspect]
     Indication: OFF LABEL USE
     Route: 047
     Dates: start: 20100926, end: 20100929
  3. TIMOPTIC [Concomitant]
     Indication: GLAUCOMA
     Route: 047
  4. TIMOPTIC [Concomitant]
     Route: 047
     Dates: end: 20100930
  5. DICLOFENAC SODIUM [Concomitant]
     Indication: PREOPERATIVE CARE
     Route: 047
     Dates: start: 20100926, end: 20100928
  6. THERATEARS [Concomitant]
     Indication: OCULAR HYPERAEMIA
     Route: 047
     Dates: start: 20100916

REACTIONS (3)
  - DRUG TOXICITY [None]
  - IRITIS [None]
  - ULCERATIVE KERATITIS [None]
